FAERS Safety Report 6336712-2 (Version None)
Quarter: 2009Q3

REPORT INFORMATION
  Report Type: 
  Country: None (occurrence: None)
  Receive Date: 20090901
  Receipt Date: 20090827
  Transmission Date: 20100115
  Serious: No
  Sender: FDA-Public Use
  Company Number: US-B.I. PHARMACEUTICALS,INC./RIDGEFIELD-2009-BP-10125BP

PATIENT
  Age: 86 Year
  Sex: Female

DRUGS (4)
  1. CATAPRES-TTS-1 [Suspect]
     Indication: HYPERTENSION
     Dosage: 1.0714 MG
     Route: 061
     Dates: start: 20040101
  2. TOPROL-XL [Concomitant]
  3. PROCARDIA [Concomitant]
  4. VASERETIC [Concomitant]

REACTIONS (1)
  - MACULAR DEGENERATION [None]
